FAERS Safety Report 6569492-6 (Version None)
Quarter: 2010Q1

REPORT INFORMATION
  Report Type: 
  Country: None (occurrence: None)
  Receive Date: 20100204
  Receipt Date: 20100127
  Transmission Date: 20100710
  Serious: Yes (Hospitalization)
  Sender: FDA-Public Use
  Company Number: FR-PFIZER INC-2010010848

PATIENT
  Age: 56 Year
  Sex: Female

DRUGS (7)
  1. TAHOR [Suspect]
     Indication: HYPERCHOLESTEROLAEMIA
     Dosage: 40 MG, 1X/DAY
     Route: 048
  2. PREVISCAN [Suspect]
     Indication: THROMBOSIS PROPHYLAXIS
     Dosage: UNK
     Route: 048
     Dates: end: 20091001
  3. KARDEGIC [Suspect]
     Indication: THROMBOSIS PROPHYLAXIS
     Dosage: 75 MG, 1X/DAY
     Route: 048
     Dates: end: 20091001
  4. FLUOXETINE [Suspect]
     Indication: DEPRESSION
     Dosage: 1 DF, 1X/DAY
     Route: 048
  5. NEXIUM [Concomitant]
  6. COVERSYL [Concomitant]
  7. FLUDEX - SLOW RELEASE [Concomitant]

REACTIONS (2)
  - CEREBRAL HAEMATOMA [None]
  - INTERNATIONAL NORMALISED RATIO INCREASED [None]
